FAERS Safety Report 4817535-X (Version None)
Quarter: 2005Q4

REPORT INFORMATION
  Report Type: 
  Country: None (occurrence: None)
  Receive Date: 20051031
  Receipt Date: 20051017
  Transmission Date: 20060501
  Serious: Yes (Death, Hospitalization)
  Sender: FDA-Public Use
  Company Number: 2005144089

PATIENT
  Age: 46 Year
  Sex: Male

DRUGS (9)
  1. DIFLUCAN [Suspect]
     Indication: ILL-DEFINED DISORDER
     Dosage: 50 MG (50 MG DAILY) ORAL
     Route: 048
     Dates: start: 20050605, end: 20050608
  2. DURAGESIC-100 [Suspect]
     Indication: PAIN
     Dosage: 150 MCG (150 MCG, EVERY HOUR) TRANSDERMAL
     Route: 062
     Dates: start: 20050401, end: 20050608
  3. VOLTAREN [Concomitant]
  4. STILNOCT (ZOLPIDEM TARTRATE) [Concomitant]
  5. PRIMPERAN TAB [Concomitant]
  6. MORPHINE [Concomitant]
  7. RELIV (PARACETAMOL) [Concomitant]
  8. OXASCAND (OXAZEPAM) [Concomitant]
  9. LACTULOSE [Concomitant]

REACTIONS (7)
  - DRUG LEVEL ABOVE THERAPEUTIC [None]
  - DRUG TOXICITY [None]
  - DYSPHAGIA [None]
  - METABOLIC DISORDER [None]
  - RESPIRATORY DEPRESSION [None]
  - RESPIRATORY FAILURE [None]
  - SHOCK [None]
